FAERS Safety Report 17064680 (Version 1)
Quarter: 2019Q4

REPORT INFORMATION
  Report Type: Spontaneous
  Country: US (occurrence: US)
  Receive Date: 20191024
  Receipt Date: 20191024
  Transmission Date: 20200122
  Serious: Yes (Hospitalization)
  Sender: FDA-Public Use
  Company Number: None

PATIENT
  Age: 74 Year
  Sex: Male

DRUGS (1)
  1. METOLAZONE. [Suspect]
     Active Substance: METOLAZONE
     Dosage: ?          OTHER FREQUENCY:OTHER;?
     Route: 048
     Dates: start: 20190730, end: 20190806

REACTIONS (4)
  - Syncope [None]
  - Dizziness [None]
  - Acute kidney injury [None]
  - Polyuria [None]

NARRATIVE: CASE EVENT DATE: 20190730
